FAERS Safety Report 9780637 (Version 1)
Quarter: 2013Q4

REPORT INFORMATION
  Report Type: Spontaneous
  Country: DE (occurrence: DE)
  Receive Date: 20131224
  Receipt Date: 20131224
  Transmission Date: 20140711
  Serious: Yes (Hospitalization)
  Sender: FDA-Public Use
  Company Number: DE-AMGEN-DEUSP2013090167

PATIENT
  Age: 52 Year
  Sex: Male

DRUGS (3)
  1. ENBREL [Suspect]
     Indication: RHEUMATOID ARTHRITIS
     Dosage: 50 MG, WEEKLY
     Route: 065
     Dates: start: 20130702
  2. FOLIC ACID [Concomitant]
     Dosage: UNK UNK, UNK
  3. MTX                                /00113801/ [Concomitant]
     Dosage: UNK UNK, UNK

REACTIONS (3)
  - Fall [Not Recovered/Not Resolved]
  - Meniscus injury [Not Recovered/Not Resolved]
  - Ligament rupture [Not Recovered/Not Resolved]
